FAERS Safety Report 12883607 (Version 1)
Quarter: 2016Q4

REPORT INFORMATION
  Report Type: Report from Study
  Country: SA (occurrence: SA)
  Receive Date: 20161025
  Receipt Date: 20161025
  Transmission Date: 20170207
  Serious: Yes (Other)
  Sender: FDA-Public Use
  Company Number: SA-BAXTER-2016BAX054668

PATIENT

DRUGS (9)
  1. ETOPOSIDE. [Suspect]
     Active Substance: ETOPOSIDE
     Indication: LYMPHOMA
     Route: 065
  2. ENDOXAN VIALS 1 G [Suspect]
     Active Substance: CYCLOPHOSPHAMIDE
     Indication: REFRACTORY CANCER
  3. ENDOXAN VIALS 1 G [Suspect]
     Active Substance: CYCLOPHOSPHAMIDE
     Indication: LYMPHOMA
     Dosage: 1750 G/M2
     Route: 065
  4. CISPLATIN. [Suspect]
     Active Substance: CISPLATIN
     Indication: RECURRENT CANCER
  5. CISPLATIN. [Suspect]
     Active Substance: CISPLATIN
     Indication: REFRACTORY CANCER
  6. ETOPOSIDE. [Suspect]
     Active Substance: ETOPOSIDE
     Indication: REFRACTORY CANCER
  7. ENDOXAN VIALS 1 G [Suspect]
     Active Substance: CYCLOPHOSPHAMIDE
     Indication: RECURRENT CANCER
  8. ETOPOSIDE. [Suspect]
     Active Substance: ETOPOSIDE
     Indication: RECURRENT CANCER
  9. CISPLATIN. [Suspect]
     Active Substance: CISPLATIN
     Indication: LYMPHOMA
     Dosage: DAYS 1-3
     Route: 065

REACTIONS (1)
  - Haematotoxicity [Recovered/Resolved]
